FAERS Safety Report 5627705-9 (Version None)
Quarter: 2008Q1

REPORT INFORMATION
  Report Type: 
  Country: None (occurrence: None)
  Receive Date: 20080214
  Receipt Date: 20080214
  Transmission Date: 20080703
  Serious: Yes (Other)
  Sender: FDA-Public Use
  Company Number: None

PATIENT
  Sex: Female

DRUGS (2)
  1. SERTRALINE [Suspect]
     Dosage: 100 MGS - 2 TABS A DAY ORAL
     Route: 048
     Dates: start: 20070601
  2. SERTRALINE [Suspect]
     Dosage: 100 MGS - 2 TABS A DAY ORAL
     Route: 048
     Dates: start: 20080101

REACTIONS (1)
  - MIGRAINE [None]
